FAERS Safety Report 6067144-2 (Version None)
Quarter: 2009Q1

REPORT INFORMATION
  Report Type: 
  Country: None (occurrence: None)
  Receive Date: 20090204
  Receipt Date: 20090204
  Transmission Date: 20090719
  Serious: Yes (Hospitalization, Other)
  Sender: FDA-Public Use
  Company Number: None

PATIENT

DRUGS (1)
  1. BACTRIM [Suspect]
     Dosage: 44MG BID PO
     Route: 048
     Dates: start: 20081001, end: 20081003

REACTIONS (4)
  - CHOLECYSTITIS ACUTE [None]
  - CHOLELITHIASIS [None]
  - HAEMODIALYSIS [None]
  - RENAL FAILURE ACUTE [None]
